FAERS Safety Report 4743758-4 (Version None)
Quarter: 2005Q3

REPORT INFORMATION
  Report Type: 
  Country: None (occurrence: None)
  Receive Date: 20050812
  Receipt Date: 20050803
  Transmission Date: 20060218
  Serious: Yes (Hospitalization)
  Sender: FDA-Public Use
  Company Number: FR-GLAXOSMITHKLINE-B0389948A

PATIENT
  Age: 50 Year
  Sex: Male

DRUGS (4)
  1. AZANTAC [Suspect]
     Indication: DRUG USE FOR UNKNOWN INDICATION
     Route: 048
     Dates: start: 20050516, end: 20050516
  2. DIPRIVAN [Suspect]
     Indication: ANAESTHESIA
     Route: 042
     Dates: start: 20050516, end: 20050516
  3. SUFENTA [Suspect]
     Indication: ANAESTHESIA
     Route: 065
     Dates: start: 20050516, end: 20050516
  4. SEVORANE [Suspect]
     Indication: ANAESTHESIA
     Route: 055
     Dates: start: 20050516, end: 20050516

REACTIONS (5)
  - ABDOMINAL PAIN [None]
  - BLOOD AMYLASE INCREASED [None]
  - PANCREATITIS ACUTE [None]
  - PYREXIA [None]
  - WHITE BLOOD CELL COUNT INCREASED [None]
